FAERS Safety Report 5853948-5 (Version None)
Quarter: 2008Q3

REPORT INFORMATION
  Report Type: 
  Country: None (occurrence: None)
  Receive Date: 20080822
  Receipt Date: 20080813
  Transmission Date: 20090109
  Serious: Yes (Hospitalization)
  Sender: FDA-Public Use
  Company Number: B0532995A

PATIENT
  Age: 56 Year
  Sex: Female

DRUGS (3)
  1. ZOPHREN [Suspect]
     Indication: PREMEDICATION
     Route: 042
     Dates: start: 20080305
  2. DOXORUBICIN HCL [Suspect]
     Indication: BREAST CANCER
     Dosage: 82MG PER DAY
     Route: 042
     Dates: start: 20080305
  3. AVASTIN [Suspect]
     Indication: BREAST CANCER
     Dosage: 570MG PER DAY
     Route: 042
     Dates: start: 20080305

REACTIONS (3)
  - HEADACHE [None]
  - NAUSEA [None]
  - VOMITING [None]
